FAERS Safety Report 4475427-2 (Version None)
Quarter: 2004Q4

REPORT INFORMATION
  Report Type: 
  Country: None (occurrence: None)
  Receive Date: 20041014
  Receipt Date: 20041014
  Transmission Date: 20050328
  Serious: No
  Sender: FDA-Public Use
  Company Number: None

PATIENT
  Age: 56 Year
  Sex: Male
  Weight: 114.3065 kg

DRUGS (2)
  1. 6-MERCAPTOPURINE (50MG) [Suspect]
     Indication: CROHN'S DISEASE
     Dosage: PO BID 50MGS
     Route: 048
  2. 6-MERCAPTOPURINE (50MG) [Suspect]
     Indication: FISTULA
     Dosage: PO BID 50MGS
     Route: 048

REACTIONS (2)
  - RASH ERYTHEMATOUS [None]
  - RASH PRURITIC [None]
